FAERS Safety Report 4620088-2 (Version None)
Quarter: 2005Q1

REPORT INFORMATION
  Report Type: 
  Country: None (occurrence: None)
  Receive Date: 20050322
  Receipt Date: 20050322
  Transmission Date: 20050727
  Serious: Yes (Life-Threatening)
  Sender: FDA-Public Use
  Company Number: None

PATIENT
  Age: 44 Year
  Sex: Male
  Weight: 91.6266 kg

DRUGS (11)
  1. TRILEPTAL [Suspect]
     Indication: BIPOLAR DISORDER
     Dosage: 300MG  BID ORAL
     Route: 048
     Dates: start: 20050121, end: 20050126
  2. TRILEPTAL [Suspect]
     Indication: SCHIZOAFFECTIVE DISORDER
     Dosage: 300MG  BID ORAL
     Route: 048
     Dates: start: 20050121, end: 20050126
  3. HYDROCHLOROTHIAZIDE [Suspect]
     Indication: HYPERTENSION
     Dosage: 25MG  QD ORAL
     Route: 048
     Dates: start: 20041125, end: 20050310
  4. TRAZODONE HCL [Concomitant]
  5. CLONAZEPAM [Concomitant]
  6. VALPROIC ACID [Concomitant]
  7. RISPERDAL [Concomitant]
  8. CONSTA [Concomitant]
  9. GLIPIZIDE [Concomitant]
  10. LISINOPRIL [Concomitant]
  11. BENZTROPINE MESYLATE [Concomitant]

REACTIONS (4)
  - ASTHENIA [None]
  - BLOOD GLUCOSE INCREASED [None]
  - HYPONATRAEMIA [None]
  - MENTAL STATUS CHANGES [None]
